FAERS Safety Report 19180924 (Version 1)
Quarter: 2021Q2

REPORT INFORMATION
  Report Type: Spontaneous
  Country: GB (occurrence: GB)
  Receive Date: 20210426
  Receipt Date: 20210426
  Transmission Date: 20210717
  Serious: Yes (Other)
  Sender: FDA-Public Use
  Company Number: GB-AMGEN-GBRSP2021060242

PATIENT
  Age: 13 Year
  Sex: Female

DRUGS (1)
  1. XGEVA [Suspect]
     Active Substance: DENOSUMAB
     Indication: ANEURYSMAL BONE CYST
     Dosage: UNK
     Route: 065

REACTIONS (3)
  - Osteosclerosis [Unknown]
  - Off label use [Unknown]
  - Arthralgia [Unknown]
